FAERS Safety Report 6243661-7 (Version None)
Quarter: 2009Q2

REPORT INFORMATION
  Report Type: 
  Country: None (occurrence: None)
  Receive Date: 20090624
  Receipt Date: 20090618
  Transmission Date: 20091009
  Serious: Yes (Hospitalization)
  Sender: FDA-Public Use
  Company Number: FR-AVENTIS-200912273FR

PATIENT
  Age: 13 Year
  Sex: Female

DRUGS (5)
  1. CLAFORAN [Suspect]
     Dates: start: 20090327, end: 20090331
  2. VANCOMYCINE [Suspect]
     Dates: start: 20090327, end: 20090331
  3. GENTAMICINE [Suspect]
     Dates: start: 20090327, end: 20090331
  4. CLAMOXYL                           /00249601/ [Suspect]
     Dates: start: 20090327, end: 20090331
  5. ZOVIRAX [Suspect]
     Dates: start: 20090327

REACTIONS (1)
  - RENAL FAILURE ACUTE [None]
